FAERS Safety Report 12241230 (Version 1)
Quarter: 2016Q2

REPORT INFORMATION
  Report Type: Report from Study
  Country: MX (occurrence: MX)
  Receive Date: 20160406
  Receipt Date: 20160406
  Transmission Date: 20160815
  Serious: Yes (Hospitalization, Other)
  Sender: FDA-Public Use
  Company Number: MX-ROCHE-1736848

PATIENT
  Sex: Female
  Weight: 65.5 kg

DRUGS (3)
  1. COPEGUS [Suspect]
     Active Substance: RIBAVIRIN
     Indication: HEPATITIS C
     Dosage: 3 TABLETS AT MORNING AND 3 TABLETS AT NIGHT
     Route: 048
     Dates: start: 2015, end: 201601
  2. OMEPRAZOLE. [Concomitant]
     Active Substance: OMEPRAZOLE
     Route: 048
     Dates: start: 2015, end: 201601
  3. PEGASYS [Suspect]
     Active Substance: PEGINTERFERON ALFA-2A
     Indication: HEPATITIS C
     Route: 058
     Dates: start: 2015, end: 201601

REACTIONS (9)
  - Asthenia [Not Recovered/Not Resolved]
  - Urinary tract infection [Recovered/Resolved]
  - Bone pain [Recovered/Resolved]
  - Viral load increased [Not Recovered/Not Resolved]
  - Drug dose omission [Unknown]
  - Pyrexia [Recovered/Resolved]
  - Liver injury [Not Recovered/Not Resolved]
  - Disorientation [Not Recovered/Not Resolved]
  - Treatment noncompliance [Unknown]

NARRATIVE: CASE EVENT DATE: 2015
